FAERS Safety Report 4289161-5 (Version None)
Quarter: 2004Q1

REPORT INFORMATION
  Report Type: 
  Country: None (occurrence: None)
  Receive Date: 20040206
  Receipt Date: 20040126
  Transmission Date: 20041129
  Serious: Yes (Death)
  Sender: FDA-Public Use
  Company Number: CA-JNJFOC-20031006605

PATIENT
  Age: 54 Year
  Sex: Female
  Weight: 63.3 kg

DRUGS (6)
  1. REMICADE [Suspect]
     Indication: RHEUMATOID ARTHRITIS
     Dosage: 200 MG, INTRAVENOUS
     Route: 042
     Dates: start: 20030801
  2. METHOTREXATE [Concomitant]
  3. FOLIC ACID [Concomitant]
  4. CLINORIL [Concomitant]
  5. IMOVANE (ZOPICLONE) [Concomitant]
  6. OGEN [Concomitant]

REACTIONS (8)
  - BLOOD ALKALINE PHOSPHATASE INCREASED [None]
  - CHOLELITHIASIS [None]
  - HEPATIC NEOPLASM MALIGNANT [None]
  - HEPATOMEGALY [None]
  - LIVER ABSCESS [None]
  - MALAISE [None]
  - METASTATIC NEOPLASM [None]
  - SUDDEN DEATH [None]
